FAERS Safety Report 5726238-9 (Version None)
Quarter: 2008Q2

REPORT INFORMATION
  Report Type: 
  Country: None (occurrence: None)
  Receive Date: 20080502
  Receipt Date: 20080502
  Transmission Date: 20081010
  Serious: Yes (Life-Threatening)
  Sender: FDA-Public Use
  Company Number: None

PATIENT
  Age: 31 Year
  Sex: Female
  Weight: 99 kg

DRUGS (1)
  1. HEPARIN [Suspect]
     Indication: ARTERIOVENOUS GRAFT THROMBOSIS
     Dosage: 5000 UNITS ONCE IV BOLUS
     Route: 040
     Dates: start: 20080325, end: 20080325

REACTIONS (1)
  - SHOCK [None]
